FAERS Safety Report 6917799-2 (Version None)
Quarter: 2010Q3

REPORT INFORMATION
  Report Type: 
  Country: None (occurrence: None)
  Receive Date: 20100806
  Receipt Date: 20100726
  Transmission Date: 20110219
  Serious: Yes (Other)
  Sender: FDA-Public Use
  Company Number: 2009-5240

PATIENT
  Age: 15 Year
  Sex: Male
  Weight: 27 kg

DRUGS (5)
  1. INCRELEX [Suspect]
     Indication: CONGENITAL OSTEODYSTROPHY
     Dosage: SEE IMAGE
     Route: 058
     Dates: start: 20091016, end: 20091025
  2. INCRELEX [Suspect]
     Indication: CONGENITAL OSTEODYSTROPHY
     Dosage: SEE IMAGE
     Route: 058
     Dates: start: 20091026, end: 20091101
  3. INCRELEX [Suspect]
     Indication: CONGENITAL OSTEODYSTROPHY
     Dosage: SEE IMAGE
     Route: 058
     Dates: start: 20091102, end: 20091120
  4. CORTICOTHERAPY (CORTICOSTEROIDS) [Concomitant]
  5. VENTOLIN [Concomitant]

REACTIONS (4)
  - ANGIOEDEMA [None]
  - DYSPNOEA [None]
  - INCORRECT PRODUCT STORAGE [None]
  - INJECTION SITE PRURITUS [None]
